FAERS Safety Report 4689350-1 (Version None)
Quarter: 2005Q2

REPORT INFORMATION
  Report Type: 
  Country: None (occurrence: None)
  Receive Date: 20050608
  Receipt Date: 20050222
  Transmission Date: 20051028
  Serious: No
  Sender: FDA-Public Use
  Company Number: 2005-BP-02994BP

PATIENT
  Age: 59 Year
  Sex: Female

DRUGS (8)
  1. SPIRIVA [Suspect]
     Indication: CHRONIC OBSTRUCTIVE PULMONARY DISEASE
     Dosage: 18 MCG (18 MCG, QD), IH
     Route: 055
     Dates: start: 20041201
  2. SPIRIVA [Suspect]
     Indication: CHRONIC OBSTRUCTIVE PULMONARY DISEASE
     Dosage: 18 MCG (18 MCG, QD), IH
     Route: 055
     Dates: start: 20041201
  3. TRAZADONE (TRAZODONE) [Concomitant]
  4. LEXAPRO [Concomitant]
  5. MULTIVITAMIN [Concomitant]
  6. VTAMIN C (ASCORBIC ACID) [Concomitant]
  7. OMEGA 3 (FISH OIL) [Concomitant]
  8. CALCIUM (CALCIUM) [Concomitant]

REACTIONS (2)
  - DIZZINESS [None]
  - DYSGEUSIA [None]
